FAERS Safety Report 8560996 (Version 2)
Quarter: 2014Q1

REPORT INFORMATION
  Report Type: Spontaneous
  Country: US (occurrence: US)
  Receive Date: 20120514
  Receipt Date: 20140312
  Transmission Date: 20141002
  Serious: Yes (Hospitalization)
  Sender: FDA-Public Use
  Company Number: US-GLAXOSMITHKLINE-A0882318A

PATIENT
  Age: 67 Year
  Sex: Female
  Weight: 110 kg

DRUGS (5)
  1. AVANDIA [Suspect]
     Indication: DIABETES MELLITUS
     Dosage: 4MG PER DAY
     Route: 048
     Dates: start: 20041203, end: 20100222
  2. LIPITOR [Concomitant]
  3. METFORMIN [Concomitant]
  4. CYMBALTA [Concomitant]
  5. DIGOXIN [Concomitant]

REACTIONS (3)
  - Myocardial infarction [Recovering/Resolving]
  - Cardiac failure congestive [Unknown]
  - Atrial fibrillation [Unknown]
